FAERS Safety Report 25930692 (Version 1)
Quarter: 2025Q4

REPORT INFORMATION
  Report Type: Spontaneous
  Country: US (occurrence: US)
  Receive Date: 20251016
  Receipt Date: 20251016
  Transmission Date: 20260117
  Serious: Yes (Hospitalization)
  Sender: MERCK SHARP & DOHME LLC
  Company Number: US-009507513-2339871

PATIENT
  Age: 50 Year
  Sex: Female
  Weight: 60.781 kg

DRUGS (2)
  1. PEMBROLIZUMAB [Suspect]
     Active Substance: PEMBROLIZUMAB
     Indication: Renal cancer
     Dosage: STRENGTH 200 MG; DOSE: 200
     Route: 042
     Dates: start: 20250926
  2. LENVATINIB [Suspect]
     Active Substance: LENVATINIB
     Indication: Renal cancer
     Dosage: STRENGTH 20 MG; DOSE: 200, QD
     Route: 048
     Dates: start: 20250926, end: 20251003

REACTIONS (5)
  - Deep vein thrombosis [Not Recovered/Not Resolved]
  - Product use issue [Unknown]
  - Dyspnoea [Unknown]
  - Hypertension [Unknown]
  - Blood pressure decreased [Unknown]

NARRATIVE: CASE EVENT DATE: 20250926
